FAERS Safety Report 19607899 (Version 1)
Quarter: 2021Q3

REPORT INFORMATION
  Report Type: Spontaneous
  Country: GB (occurrence: GB)
  Receive Date: 20210726
  Receipt Date: 20210726
  Transmission Date: 20211014
  Serious: Yes (Other)
  Sender: FDA-Public Use
  Company Number: GB-NOVOPROD-692145

PATIENT
  Sex: Male

DRUGS (11)
  1. HYPURIN PORCINE ISOPHANE [Suspect]
     Active Substance: INSULIN PORK\INSULIN PURIFIED PORK
     Indication: DIABETES MELLITUS
     Dosage: 50 IU, QD (28 UNITS MORNING, 22 UNITS EVENING)
     Route: 065
  2. ASPIRIN. [Concomitant]
     Active Substance: ASPIRIN
     Dosage: 75 MILLIGRAMS
  3. HYPURIN PORCINE NEUTRAL [Suspect]
     Active Substance: INSULIN PORK\INSULIN PURIFIED PORK
     Indication: DIABETES MELLITUS
     Dosage: 50 IU, QD (28 UNITS MORNING, 22 UNITS EVENING)
     Route: 065
  4. ATORVASTATIN [Concomitant]
     Active Substance: ATORVASTATIN
     Dosage: 20 MILLIGRAM
     Route: 065
  5. HUMALOG MIX50/50 [Suspect]
     Active Substance: INSULIN LISPRO
     Indication: PRODUCT USED FOR UNKNOWN INDICATION
     Dosage: UNK
     Dates: start: 1990
  6. HYPURIN PORCINE NEUTRAL [Suspect]
     Active Substance: INSULIN PORK\INSULIN PURIFIED PORK
     Dosage: 75 IU, QD (40 UNITS MORNING AND 35 UNITS EVENING)
     Route: 065
  7. HUMAN INSULIN [Suspect]
     Active Substance: INSULIN HUMAN
     Indication: DIABETES MELLITUS
     Dosage: UNK
     Route: 065
     Dates: start: 1990
  8. INSULIN PORCINE [Suspect]
     Active Substance: INSULIN PORK\INSULIN PURIFIED PORK
     Indication: DIABETES MELLITUS
     Dosage: UNK
     Route: 065
     Dates: start: 1966, end: 1990
  9. RAMIPRIL. [Concomitant]
     Active Substance: RAMIPRIL
     Dosage: 5 MILIGRAM
  10. LANSOPRAZOLE. [Concomitant]
     Active Substance: LANSOPRAZOLE
     Dosage: 15 MILLIGRAM
  11. HYPURIN PORCINE ISOPHANE [Suspect]
     Active Substance: INSULIN PORK\INSULIN PURIFIED PORK
     Dosage: 83 IU, QD (48 UNITS MORNING AND 35 UNITS EVENING)
     Route: 065

REACTIONS (8)
  - Blood glucose increased [Unknown]
  - Product quality issue [Unknown]
  - Vomiting [Unknown]
  - Pollakiuria [Unknown]
  - Increased insulin requirement [Unknown]
  - Visual impairment [Not Recovered/Not Resolved]
  - Abnormal weight gain [Unknown]
  - Diabetes mellitus inadequate control [Unknown]
